FAERS Safety Report 9363464 (Version 2)
Quarter: 2013Q3

REPORT INFORMATION
  Report Type: Spontaneous
  Country: FR (occurrence: FR)
  Receive Date: 20130624
  Receipt Date: 20130718
  Transmission Date: 20140515
  Serious: Yes (Other)
  Sender: FDA-Public Use
  Company Number: FR-MPIJNJ-2013-04825

PATIENT
  Sex: 0

DRUGS (5)
  1. VELCADE [Suspect]
     Indication: PLASMA CELL MYELOMA
     Dosage: 2.4 MG, UNK
     Route: 058
     Dates: start: 20130324, end: 20130610
  2. DEXAMETHASONE [Concomitant]
     Indication: PLASMA CELL MYELOMA
     Dosage: UNK
     Dates: start: 20130324, end: 20130610
  3. APROVEL [Concomitant]
  4. ALLOPURINOL [Concomitant]
  5. PRAVASTATIN [Concomitant]

REACTIONS (1)
  - Jessner^s lymphocytic infiltration [Recovered/Resolved]
